FAERS Safety Report 19578133 (Version 1)
Quarter: 2021Q3

REPORT INFORMATION
  Report Type: Spontaneous
  Country: CN (occurrence: CN)
  Receive Date: 20210719
  Receipt Date: 20210719
  Transmission Date: 20211014
  Serious: Yes (Hospitalization)
  Sender: FDA-Public Use
  Company Number: CN-BAXTER-2021BAX020912

PATIENT
  Age: 54 Year
  Sex: Female
  Weight: 58 kg

DRUGS (4)
  1. ENDOXAN [Suspect]
     Active Substance: CYCLOPHOSPHAMIDE
     Indication: BREAST CANCER FEMALE
     Dosage: CYCLOPHOSPHAMIDE 0.9 G + 0.9% SALINE 100 ML; THREE COURSES OF CHEMOTHERAPY
     Route: 041
     Dates: start: 20210429, end: 20210610
  2. SALINE [Suspect]
     Active Substance: SODIUM CHLORIDE
     Indication: MEDICATION DILUTION
     Dosage: CYCLOPHOSPHAMIDE 0.9 G + 0.9% SALINE 100 ML; THREE COURSES OF CHEMOTHERAPY
     Route: 041
     Dates: start: 20210429, end: 20210610
  3. 0.9% SODIUM CHLORIDE INJECTION [Suspect]
     Active Substance: SODIUM CHLORIDE
     Indication: MEDICATION DILUTION
     Dosage: PACLITAXEL (ALBUMIN?BOUND) 390 MG + 0.9% NS 78 ML; THREE COURSES OF CHEMOTHERAPY
     Route: 041
     Dates: start: 20210429, end: 20210610
  4. PACLITAXEL ALBUMIN [Suspect]
     Active Substance: PACLITAXEL
     Indication: BREAST CANCER FEMALE
     Dosage: PACLITAXEL (ALBUMIN?BOUND) 390 MG + 0.9% NS 78 ML; THREE COURSES OF CHEMOTHERAPY
     Route: 041
     Dates: start: 20210429, end: 20210610

REACTIONS (2)
  - Aspartate aminotransferase increased [Recovering/Resolving]
  - Alanine aminotransferase increased [Recovering/Resolving]

NARRATIVE: CASE EVENT DATE: 20210701
